FAERS Safety Report 5729382-5 (Version None)
Quarter: 2008Q2

REPORT INFORMATION
  Report Type: 
  Country: None (occurrence: None)
  Receive Date: 20080506
  Receipt Date: 20080424
  Transmission Date: 20081010
  Serious: Yes (Other)
  Sender: FDA-Public Use
  Company Number: FR-PFIZER INC-2008038339

PATIENT
  Age: 7 Month

DRUGS (2)
  1. CYTOTEC [Suspect]
  2. MIFEGYNE [Concomitant]

REACTIONS (3)
  - DIARRHOEA [None]
  - DRUG EXPOSURE VIA BREAST MILK [None]
  - VOMITING [None]
